FAERS Safety Report 13367283 (Version 2)
Quarter: 2017Q1

REPORT INFORMATION
  Report Type: Spontaneous
  Country: ES (occurrence: ES)
  Receive Date: 20170324
  Receipt Date: 20170324
  Transmission Date: 20170429
  Serious: Yes (Hospitalization, Other)
  Sender: FDA-Public Use
  Company Number: ES-CIPLA LTD.-2017ES04594

PATIENT

DRUGS (6)
  1. TENOFOVIR/EMTRICITABINE [Suspect]
     Active Substance: EMTRICITABINE\TENOFOVIR
     Indication: HIV INFECTION
     Dosage: 245/200 MG, QD
     Route: 065
     Dates: start: 200810
  2. WARFARIN [Interacting]
     Active Substance: WARFARIN
     Dosage: 25 MG, PER DAY ON TUESDAYS, WEDNESDAYS, FRIDAYS AND SUNDAYS
     Route: 065
  3. DOLUTEGRAVIR [Interacting]
     Active Substance: DOLUTEGRAVIR
     Indication: HIV INFECTION
     Dosage: 50 MG, QD
     Route: 065
  4. WARFARIN [Suspect]
     Active Substance: WARFARIN
     Indication: ANTICOAGULANT THERAPY
     Dosage: 20 MG PER DAY ON MONDAY, THURSDAY AND SATURDAY
     Route: 065
  5. WARFARIN [Interacting]
     Active Substance: WARFARIN
     Dosage: 20 MG, ALTERNATING IN SUBSEQUENT DAYS WITH DOSES OF 15 AND 20 MG
     Route: 065
  6. LOPINAVIR/RITONAVIR [Suspect]
     Active Substance: LOPINAVIR\RITONAVIR
     Indication: HIV INFECTION
     Dosage: 200/50 MG,  2 TABLETS EVERY 12 HOURS
     Route: 065
     Dates: start: 200810

REACTIONS (9)
  - Malaise [Unknown]
  - Mitral valve incompetence [Unknown]
  - Aortic stenosis [Unknown]
  - Hypertension [Unknown]
  - Odynophagia [Unknown]
  - Drug interaction [Unknown]
  - Haematoma [Recovered/Resolved]
  - Faeces discoloured [Unknown]
  - Toxicity to various agents [Unknown]

NARRATIVE: CASE EVENT DATE: 201409
